FAERS Safety Report 10694682 (Version 1)
Quarter: 2015Q1

REPORT INFORMATION
  Report Type: Spontaneous
  Country: US (occurrence: None)
  Receive Date: 20150105
  Receipt Date: 20150105
  Transmission Date: 20150721
  Serious: Yes (Life-Threatening, Hospitalization, Disabling)
  Sender: FDA-Public Use
  Company Number: None

PATIENT
  Age: 81 Year
  Sex: Female
  Weight: 83.92 kg

DRUGS (1)
  1. XARELTO [Suspect]
     Active Substance: RIVAROXABAN
     Indication: PULMONARY THROMBOSIS
     Dosage: 2 PILLS/DAY THEN 1 DAY, TWICE DAILY TAKEN BY MOUTH
     Route: 048
     Dates: start: 20131123, end: 20131225

REACTIONS (6)
  - Pain in extremity [None]
  - Paradoxical drug reaction [None]
  - Abasia [None]
  - Weight bearing difficulty [None]
  - Microembolism [None]
  - Lung carcinoma cell type unspecified stage IV [None]

NARRATIVE: CASE EVENT DATE: 20131215
